FAERS Safety Report 25866983 (Version 2)
Quarter: 2025Q4

REPORT INFORMATION
  Report Type: Spontaneous
  Country: US (occurrence: US)
  Receive Date: 20251001
  Receipt Date: 20251004
  Transmission Date: 20260118
  Serious: Yes (Hospitalization)
  Sender: ABBVIE
  Company Number: US-ABBVIE-6482436

PATIENT
  Sex: Female

DRUGS (1)
  1. RINVOQ [Suspect]
     Active Substance: UPADACITINIB
     Indication: Colitis ulcerative
     Route: 048

REACTIONS (6)
  - Hospitalisation [Unknown]
  - Product storage error [Unknown]
  - Gastric infection [Unknown]
  - Large intestine infection [Unknown]
  - Abdominal pain [Unknown]
  - Abnormal faeces [Unknown]
